FAERS Safety Report 13747551 (Version 1)
Quarter: 2017Q3

REPORT INFORMATION
  Report Type: Report from Study
  Country: US (occurrence: US)
  Receive Date: 20170712
  Receipt Date: 20170712
  Transmission Date: 20171127
  Serious: No
  Sender: FDA-Public Use
  Company Number: GXBR2017US002048

PATIENT
  Sex: Female
  Weight: 8.4 kg

DRUGS (1)
  1. OMNITROPE [Suspect]
     Active Substance: SOMATROPIN
     Indication: BODY HEIGHT BELOW NORMAL
     Dosage: 0.1 ML, QD
     Route: 058
     Dates: start: 201706

REACTIONS (2)
  - Arthralgia [Unknown]
  - Irritability [Unknown]
